FAERS Safety Report 9719186 (Version 1)
Quarter: 2013Q4

REPORT INFORMATION
  Report Type: Spontaneous
  Country: DE (occurrence: DE)
  Receive Date: 20131127
  Receipt Date: 20131127
  Transmission Date: 20140711
  Serious: Yes (Death)
  Sender: FDA-Public Use
  Company Number: GXKR2013DE003653

PATIENT
  Age: 75 Year
  Sex: Male

DRUGS (2)
  1. ACETYLSALICYLIC ACID [Suspect]
  2. PLAVIX [Suspect]

REACTIONS (1)
  - Subdural haematoma [Fatal]
